FAERS Safety Report 6402265-3 (Version None)
Quarter: 2009Q4

REPORT INFORMATION
  Report Type: 
  Country: None (occurrence: None)
  Receive Date: 20091015
  Receipt Date: 20091002
  Transmission Date: 20100525
  Serious: Yes (Other)
  Sender: FDA-Public Use
  Company Number: PHHY2009CA39800

PATIENT
  Sex: Female

DRUGS (1)
  1. DIOVAN [Suspect]
     Dosage: 1 DF 80 MG, UNK
     Route: 048
     Dates: start: 20090913

REACTIONS (11)
  - BACK PAIN [None]
  - EYE IRRITATION [None]
  - EYE PAIN [None]
  - FACIAL PAIN [None]
  - HEADACHE [None]
  - HYPERTENSION [None]
  - HYPOAESTHESIA [None]
  - HYPOAESTHESIA FACIAL [None]
  - PAIN IN EXTREMITY [None]
  - SKIN IRRITATION [None]
  - TOOTH DISORDER [None]
